FAERS Safety Report 18130275 (Version 1)
Quarter: 2020Q3

REPORT INFORMATION
  Report Type: Spontaneous
  Country: US (occurrence: US)
  Receive Date: 20200810
  Receipt Date: 20200810
  Transmission Date: 20201103
  Serious: Yes (Other)
  Sender: FDA-Public Use
  Company Number: US-BAYER-2020-157425

PATIENT
  Age: 3 Decade
  Sex: Female

DRUGS (2)
  1. MIRENA [Suspect]
     Active Substance: LEVONORGESTREL
     Indication: CONTRACEPTION
     Dosage: 20 ?G PER DAY CONTINUOUSLY
     Route: 015
  2. MIRENA [Suspect]
     Active Substance: LEVONORGESTREL
     Indication: MENORRHAGIA

REACTIONS (7)
  - Abdominal pain lower [Not Recovered/Not Resolved]
  - Medical device discomfort [Not Recovered/Not Resolved]
  - Injury associated with device [Not Recovered/Not Resolved]
  - Device dislocation [Not Recovered/Not Resolved]
  - Uterine cervical pain [Not Recovered/Not Resolved]
  - Device physical property issue [None]
  - Adnexa uteri pain [Not Recovered/Not Resolved]

NARRATIVE: CASE EVENT DATE: 2019
